FAERS Safety Report 20741000 (Version 1)
Quarter: 2022Q2

REPORT INFORMATION
  Report Type: Spontaneous
  Country: US (occurrence: None)
  Receive Date: 20220422
  Receipt Date: 20220422
  Transmission Date: 20220721
  Serious: Yes (Disabling)
  Sender: FDA-Public Use
  Company Number: None

PATIENT
  Age: 36 Year
  Sex: Female
  Weight: 58.5 kg

DRUGS (4)
  1. BOTOX [Suspect]
     Active Substance: ONABOTULINUMTOXINA
     Indication: Migraine
     Route: 030
     Dates: start: 20210519
  2. Chewable Vitamin [Concomitant]
  3. B12 gummi vitamins [Concomitant]
  4. Vitamin D gummis [Concomitant]

REACTIONS (9)
  - Influenza like illness [None]
  - Pain [None]
  - Paraesthesia [None]
  - Burning sensation [None]
  - Muscle strength abnormal [None]
  - Neuropathy peripheral [None]
  - Dysstasia [None]
  - Hypoaesthesia [None]
  - Pain in extremity [None]

NARRATIVE: CASE EVENT DATE: 20210519
